FAERS Safety Report 17484401 (Version 1)
Quarter: 2020Q1

REPORT INFORMATION
  Report Type: Spontaneous
  Country: TW (occurrence: TW)
  Receive Date: 20200302
  Receipt Date: 20200302
  Transmission Date: 20200409
  Serious: Yes (Other)
  Sender: FDA-Public Use
  Company Number: TW-ASTRAZENECA-2020SE29368

PATIENT
  Age: 63 Year
  Sex: Male

DRUGS (1)
  1. OSIMERTINIB. [Suspect]
     Active Substance: OSIMERTINIB
     Indication: LUNG ADENOCARCINOMA STAGE IV
     Route: 048
     Dates: start: 201902, end: 2019

REACTIONS (4)
  - Small cell lung cancer [Unknown]
  - Malignant transformation [Unknown]
  - Malignant neoplasm progression [Unknown]
  - Drug resistance [Unknown]

NARRATIVE: CASE EVENT DATE: 201904
